FAERS Safety Report 9556899 (Version 3)
Quarter: 2013Q4

REPORT INFORMATION
  Report Type: Spontaneous
  Country: US (occurrence: US)
  Receive Date: 20130926
  Receipt Date: 20131008
  Transmission Date: 20140711
  Serious: Yes (Other)
  Sender: FDA-Public Use
  Company Number: US-PFIZER INC-2013274882

PATIENT
  Age: 44 Year
  Sex: Male
  Weight: 101.59 kg

DRUGS (3)
  1. LYRICA [Suspect]
     Indication: FIBROMYALGIA
     Dosage: 75 MG, 2X/DAY
     Route: 048
     Dates: start: 2011, end: 201307
  2. GABAPENTIN [Suspect]
     Dosage: UNK
  3. CARVEDILOL [Concomitant]
     Indication: HYPERTENSION
     Dosage: UNK

REACTIONS (15)
  - Carpal tunnel syndrome [Unknown]
  - Confusional state [Unknown]
  - Headache [Unknown]
  - Discomfort [Unknown]
  - Pain [Unknown]
  - Gait disturbance [Unknown]
  - Impaired work ability [Unknown]
  - Feeling abnormal [Unknown]
  - Memory impairment [Unknown]
  - Neck pain [Unknown]
  - Pain in extremity [Unknown]
  - Musculoskeletal pain [Unknown]
  - Insomnia [Unknown]
  - Intentional drug misuse [Unknown]
  - Drug ineffective [Unknown]
